FAERS Safety Report 24990481 (Version 4)
Quarter: 2025Q2

REPORT INFORMATION
  Report Type: Report from Study
  Country: CO (occurrence: CO)
  Receive Date: 20250220
  Receipt Date: 20250618
  Transmission Date: 20250716
  Serious: Yes (Other)
  Sender: ABBVIE
  Company Number: CO-ABBVIE-6142061

PATIENT
  Age: 82 Year
  Sex: Female
  Weight: 70 kg

DRUGS (1)
  1. RINVOQ [Suspect]
     Active Substance: UPADACITINIB
     Indication: Rheumatoid arthritis
     Dosage: RINVOQ BOTTLE 15MG
     Route: 048
     Dates: start: 20230623

REACTIONS (6)
  - Spinal operation [Recovering/Resolving]
  - Rhizolysis [Recovering/Resolving]
  - Compression fracture [Recovering/Resolving]
  - Back pain [Recovering/Resolving]
  - Nerve compression [Recovering/Resolving]
  - Proctalgia [Unknown]

NARRATIVE: CASE EVENT DATE: 20250114
